FAERS Safety Report 5391473-9 (Version None)
Quarter: 2007Q3

REPORT INFORMATION
  Report Type: 
  Country: None (occurrence: None)
  Receive Date: 20070719
  Receipt Date: 20070712
  Transmission Date: 20080115
  Serious: Yes (Hospitalization)
  Sender: FDA-Public Use
  Company Number: FR-ASTRAZENECA-2007CG01057

PATIENT
  Age: 29595 Day
  Sex: Male

DRUGS (7)
  1. XYLOCAINE [Suspect]
     Indication: LOCAL ANAESTHESIA
     Route: 065
     Dates: start: 20070510, end: 20070510
  2. COAPROVEL [Concomitant]
  3. KARDEGIC [Concomitant]
  4. AMLODIPINE [Concomitant]
  5. SOTALOL HCL [Concomitant]
  6. PIASCLEDINE [Concomitant]
  7. UNSPECIFIED MAGNESIUM SALT [Concomitant]
     Dates: start: 20070301

REACTIONS (2)
  - RASH MACULO-PAPULAR [None]
  - TOXIC SKIN ERUPTION [None]
